FAERS Safety Report 6722208-2 (Version None)
Quarter: 2010Q2

REPORT INFORMATION
  Report Type: 
  Country: None (occurrence: None)
  Receive Date: 20100512
  Receipt Date: 20100428
  Transmission Date: 20101027
  Serious: Yes (Other)
  Sender: FDA-Public Use
  Company Number: NL-ELI_LILLY_AND_COMPANY-NL201005000503

PATIENT
  Age: 30 Year
  Sex: Female

DRUGS (1)
  1. CYMBALTA [Suspect]
     Indication: DEPRESSION
     Dosage: 60 MG, UNKNOWN
     Route: 065

REACTIONS (3)
  - CEREBROVASCULAR ACCIDENT [None]
  - MICTURITION DISORDER [None]
  - TONGUE BITING [None]
